FAERS Safety Report 16949004 (Version 1)
Quarter: 2019Q4

REPORT INFORMATION
  Report Type: Spontaneous
  Country: US (occurrence: US)
  Receive Date: 20191023
  Receipt Date: 20191023
  Transmission Date: 20200122
  Serious: Yes (Hospitalization, Other)
  Sender: FDA-Public Use
  Company Number: US-NAPPMUNDI-USA-2019-0147455

PATIENT
  Sex: Male

DRUGS (2)
  1. VICODIN [Suspect]
     Active Substance: ACETAMINOPHEN\HYDROCODONE BITARTRATE
     Indication: RADICULOPATHY
     Dosage: UNK
     Route: 048
     Dates: start: 2008
  2. OXYCODONE HYDROCHLORIDE (SIMILAR TO NDA 22-272) [Suspect]
     Active Substance: OXYCODONE HYDROCHLORIDE
     Indication: RADICULOPATHY
     Dosage: UNK
     Route: 048
     Dates: start: 2008

REACTIONS (4)
  - Drug abuse [Recovering/Resolving]
  - Drug withdrawal syndrome [Recovered/Resolved]
  - Drug dose titration not performed [Recovered/Resolved]
  - Drug dependence [Recovering/Resolving]
